FAERS Safety Report 10525557 (Version 2)
Quarter: 2014Q4

REPORT INFORMATION
  Report Type: Spontaneous
  Country: JP (occurrence: JP)
  Receive Date: 20141017
  Receipt Date: 20141017
  Transmission Date: 20150528
  Serious: Yes (Other)
  Sender: FDA-Public Use
  Company Number: JP-MERCK-1409JPN015219

PATIENT
  Age: 28 Year
  Sex: Female

DRUGS (7)
  1. MAGNESIUM SULFATE. [Concomitant]
     Active Substance: MAGNESIUM SULFATE
     Indication: UTERINE CONTRACTIONS DURING PREGNANCY
     Dosage: DAILY DOSAGE UNKNOWN, CONSTANT INFUSION
     Route: 041
     Dates: start: 20131126, end: 20131224
  2. RAVONAL [Concomitant]
     Active Substance: THIOPENTAL
     Indication: INDUCTION OF ANAESTHESIA
     Dosage: 3 MG/KG, UNK
     Route: 042
  3. UTEMERIN [Concomitant]
     Active Substance: RITODRINE
     Indication: UTERINE CONTRACTIONS DURING PREGNANCY
  4. MAGNESIUM SULFATE. [Concomitant]
     Active Substance: MAGNESIUM SULFATE
     Indication: THREATENED LABOUR
  5. RINDERON (BETAMETHASONE SODIUM PHOSPHATE) [Concomitant]
     Dosage: 12 MG, BID
     Route: 042
  6. ESLAX INTRAVENOUS 25MG/2.5ML [Suspect]
     Active Substance: ROCURONIUM BROMIDE
     Indication: NEUROMUSCULAR BLOCKING THERAPY
     Dosage: 50 MG, ONCE
     Route: 042
     Dates: start: 20131224, end: 20131224
  7. UTEMERIN [Concomitant]
     Active Substance: RITODRINE
     Indication: THREATENED LABOUR
     Dosage: DAILY DOSAGE UNKNOWN, CONSTATNT INFUSION
     Route: 041
     Dates: start: 20131220, end: 20131224

REACTIONS (3)
  - Maternal exposure during pregnancy [Unknown]
  - Resuscitation [Unknown]
  - Cardiac arrest [Unknown]
